FAERS Safety Report 18572556 (Version 1)
Quarter: 2020Q4

REPORT INFORMATION
  Report Type: Spontaneous
  Country: DE (occurrence: DE)
  Receive Date: 20201203
  Receipt Date: 20201203
  Transmission Date: 20210114
  Serious: Yes (Hospitalization)
  Sender: FDA-Public Use
  Company Number: DE-HORIZON-2020HZN01832

PATIENT
  Age: 7 Year
  Sex: Female
  Weight: 34 kg

DRUGS (7)
  1. REDUCTO-SPEZIAL [Suspect]
     Active Substance: POTASSIUM PHOSPHATE, MONOBASIC\SODIUM PHOSPHATE, DIBASIC, ANHYDROUS
     Indication: FANCONI SYNDROME ACQUIRED
     Dosage: 2DF DAILY
     Route: 050
  2. VIGANTOLETTEN [Suspect]
     Active Substance: CHOLECALCIFEROL
     Indication: PROPHYLAXIS
     Dosage: 1 DF QD
     Route: 050
  3. CYSTADROPS [Suspect]
     Active Substance: CYSTEAMINE HYDROCHLORIDE
     Indication: CYSTINOSIS
     Dosage: 5 TIMES DAILY
     Route: 050
  4. BICANORM [Suspect]
     Active Substance: SODIUM BICARBONATE
     Indication: FANCONI SYNDROME ACQUIRED
     Dosage: 3 DOSAGE FORM DAILY
     Route: 050
  5. URO-TABLINEN [Suspect]
     Active Substance: NITROFURANTOIN
     Indication: URINARY TRACT INFECTION
     Dosage: 1 DOSAGE FORM DAILY
     Route: 050
  6. PROCYSBI [Suspect]
     Active Substance: CYSTEAMINE BITARTRATE
     Indication: CYSTINOSIS
     Dosage: 10 DOSAGE FORM DAILY
     Route: 050
  7. OMEP [Suspect]
     Active Substance: OMEPRAZOLE
     Indication: PROPHYLAXIS AGAINST GASTROINTESTINAL ULCER
     Dosage: 1DF DAILY
     Route: 050

REACTIONS (3)
  - Vomiting [Unknown]
  - Treatment noncompliance [Unknown]
  - Product administration error [Unknown]

NARRATIVE: CASE EVENT DATE: 20190807
